FAERS Safety Report 12488743 (Version 1)
Quarter: 2016Q2

REPORT INFORMATION
  Report Type: Spontaneous
  Country: JP (occurrence: JP)
  Receive Date: 20160622
  Receipt Date: 20160622
  Transmission Date: 20160815
  Serious: Yes (Other)
  Sender: FDA-Public Use
  Company Number: JP-PFIZER INC-2016308563

PATIENT

DRUGS (2)
  1. REBAMIPIDE [Suspect]
     Active Substance: REBAMIPIDE
     Dosage: AS NEEDED
     Route: 048
  2. CELECOX [Suspect]
     Active Substance: CELECOXIB
     Dosage: AS NEEDED
     Route: 048

REACTIONS (1)
  - Cardiac sarcoidosis [Unknown]
